FAERS Safety Report 17565597 (Version 2)
Quarter: 2020Q3

REPORT INFORMATION
  Report Type: Spontaneous
  Country: US (occurrence: US)
  Receive Date: 20200320
  Receipt Date: 20200903
  Transmission Date: 20201102
  Serious: Yes (Death, Hospitalization, Other)
  Sender: FDA-Public Use
  Company Number: US-PFIZER INC-2020120858

PATIENT
  Age: 73 Year
  Sex: Male
  Weight: 123.38 kg

DRUGS (2)
  1. XELJANZ XR [Suspect]
     Active Substance: TOFACITINIB CITRATE
     Indication: RHEUMATOID ARTHRITIS
     Dosage: 11 MG, 1X/DAY (11 MG BY MOUTH EACH DAY)
     Route: 048
  2. ELIQUIS [Concomitant]
     Active Substance: APIXABAN
     Indication: THROMBOSIS PROPHYLAXIS
     Dosage: 10 MG, DAILY (5MG BY MOUTH TWICE EACH DAY)
     Route: 048

REACTIONS (6)
  - Cardiogenic shock [Fatal]
  - Paralysis [Fatal]
  - Acute respiratory failure [Fatal]
  - Illness [Unknown]
  - Coronary artery disease [Fatal]
  - Atrial fibrillation [Not Recovered/Not Resolved]

NARRATIVE: CASE EVENT DATE: 2020
